FAERS Safety Report 19821305 (Version 1)
Quarter: 2021Q3

REPORT INFORMATION
  Report Type: Spontaneous
  Country: US (occurrence: US)
  Receive Date: 20210913
  Receipt Date: 20210913
  Transmission Date: 20211014
  Serious: Yes (Hospitalization)
  Sender: FDA-Public Use
  Company Number: None

PATIENT
  Age: 75 Year
  Sex: Female
  Weight: 73.2 kg

DRUGS (2)
  1. OLUMIANT [Suspect]
     Active Substance: BARICITINIB
     Indication: COVID-19
     Route: 048
     Dates: start: 20210906, end: 20210907
  2. BARICITINIB. [Concomitant]
     Active Substance: BARICITINIB
     Dates: start: 20210906, end: 20210907

REACTIONS (4)
  - Aspartate aminotransferase increased [None]
  - Blood alkaline phosphatase increased [None]
  - Blood bilirubin increased [None]
  - Alanine aminotransferase increased [None]

NARRATIVE: CASE EVENT DATE: 20210907
